FAERS Safety Report 14228444 (Version 2)
Quarter: 2017Q4

REPORT INFORMATION
  Report Type: Spontaneous
  Country: US (occurrence: US)
  Receive Date: 20171127
  Receipt Date: 20171214
  Transmission Date: 20180321
  Serious: Yes (Other)
  Sender: FDA-Public Use
  Company Number: US-LUNDBECK-DKLU2040363

PATIENT
  Age: 71 Year
  Sex: Male

DRUGS (2)
  1. NORTHERA [Suspect]
     Active Substance: DROXIDOPA
     Indication: PARKINSON^S DISEASE
     Dosage: SCHEDULE A/TITRATING
     Route: 048
     Dates: start: 20171118
  2. NORTHERA [Suspect]
     Active Substance: DROXIDOPA
     Dosage: SCHEDULE A TITRATING
     Route: 048
     Dates: start: 20171120

REACTIONS (11)
  - Disorientation [Unknown]
  - Depressed level of consciousness [Unknown]
  - Hypersomnia [Unknown]
  - Somnolence [Not Recovered/Not Resolved]
  - Drug intolerance [Unknown]
  - Gait disturbance [Unknown]
  - Lethargy [Unknown]
  - Dizziness [Unknown]
  - Tremor [Unknown]
  - Drug ineffective [Unknown]
  - Blood pressure increased [Unknown]

NARRATIVE: CASE EVENT DATE: 20171120
